FAERS Safety Report 4645865-3 (Version None)
Quarter: 2005Q2

REPORT INFORMATION
  Report Type: 
  Country: None (occurrence: None)
  Receive Date: 20050427
  Receipt Date: 20040525
  Transmission Date: 20051028
  Serious: No
  Sender: FDA-Public Use
  Company Number: US-BRISTOL-MYERS SQUIBB COMPANY-12595989

PATIENT
  Age: 44 Year
  Sex: Female
  Weight: 73 kg

DRUGS (3)
  1. CAPTOPRIL [Suspect]
     Indication: RENAL HYPERTENSION
     Dosage: ON GENERIC-12 YRS,BEGAN APOTHECON BRAND 03-FEB-04,STOPPED ON 23-MAR-04, RE-START BRAND MAY-04
     Route: 048
  2. CUPRIMINE [Concomitant]
  3. TAGAMET [Concomitant]

REACTIONS (4)
  - DRUG INEFFECTIVE [None]
  - HEADACHE [None]
  - HYPERTENSION [None]
  - TINNITUS [None]
